FAERS Safety Report 25551557 (Version 6)
Quarter: 2025Q3

REPORT INFORMATION
  Report Type: Spontaneous
  Country: AR (occurrence: AR)
  Receive Date: 20250714
  Receipt Date: 20250903
  Transmission Date: 20251020
  Serious: No
  Sender: PFIZER
  Company Number: AR-PFIZER INC-202500137874

PATIENT
  Age: 9 Year
  Sex: Female

DRUGS (4)
  1. GENOTROPIN [Suspect]
     Active Substance: SOMATROPIN
     Indication: Turner^s syndrome
     Dates: start: 20240929, end: 20250705
  2. GENOTROPIN [Suspect]
     Active Substance: SOMATROPIN
     Dates: start: 20240929, end: 20250705
  3. GENOTROPIN [Suspect]
     Active Substance: SOMATROPIN
     Dates: start: 20240929
  4. GENOTROPIN [Suspect]
     Active Substance: SOMATROPIN
     Dates: start: 20240929

REACTIONS (5)
  - Drug dose omission by device [Unknown]
  - Device physical property issue [Unknown]
  - Device leakage [Unknown]
  - Device use error [Unknown]
  - Device occlusion [Unknown]

NARRATIVE: CASE EVENT DATE: 20250705
